FAERS Safety Report 25961709 (Version 5)
Quarter: 2025Q4

REPORT INFORMATION
  Report Type: Report from Study
  Country: US (occurrence: US)
  Receive Date: 20251027
  Receipt Date: 20251209
  Transmission Date: 20260117
  Serious: No
  Sender: SANDOZ
  Company Number: US-SANDOZ-SDZ2025US078739

PATIENT
  Sex: Female

DRUGS (2)
  1. OMNITROPE [Suspect]
     Active Substance: SOMATROPIN
     Indication: Hypopituitarism
     Dosage: 3 MG, QD (OMNITROPE 10 MG/1.5 ML SOLUTION FOR INJECTION IN CARTRIDGE)
     Route: 058
  2. OMNITROPE [Suspect]
     Active Substance: SOMATROPIN
     Indication: Hypopituitarism
     Dosage: 3 MG, QD (OMNITROPE 10 MG/1.5 ML SOLUTION FOR INJECTION IN CARTRIDGE)
     Route: 058

REACTIONS (5)
  - Contusion [Not Recovered/Not Resolved]
  - Injection site pain [Unknown]
  - Injection site bruising [Unknown]
  - Device difficult to use [Unknown]
  - Device mechanical issue [Unknown]
